FAERS Safety Report 7374716-1 (Version None)
Quarter: 2011Q1

REPORT INFORMATION
  Report Type: 
  Country: None (occurrence: None)
  Receive Date: 20110325
  Receipt Date: 20100827
  Transmission Date: 20110831
  Serious: No
  Sender: FDA-Public Use
  Company Number: US-MYLANLABS-2010S1015963

PATIENT
  Age: 77 Year
  Sex: Female

DRUGS (12)
  1. LEVOTHYROXINE SODIUM [Concomitant]
  2. FOLIC ACID [Concomitant]
  3. COZAAR [Concomitant]
  4. OXYCODONE [Concomitant]
  5. CALCIUM + VITAMIN D [Concomitant]
  6. LIDODERM [Concomitant]
     Dosage: 5%
  7. PREDNISONE [Concomitant]
  8. MAGNESIUM [Concomitant]
  9. METHOTREXATE [Concomitant]
     Dosage: INJECTION
  10. FENTANYL-100 [Suspect]
     Indication: CANCER PAIN
     Dosage: Q 72 HOURS
     Route: 062
  11. NEXIUM [Concomitant]
  12. HYDROCHLOROTHIAZIDE [Concomitant]

REACTIONS (4)
  - FATIGUE [None]
  - MUSCLE SPASMS [None]
  - HYPERHIDROSIS [None]
  - MUSCULAR WEAKNESS [None]
